FAERS Safety Report 9871371 (Version 1)
Quarter: 2014Q1

REPORT INFORMATION
  Report Type: Spontaneous
  Country: FR (occurrence: FR)
  Receive Date: 20140205
  Receipt Date: 20140205
  Transmission Date: 20141002
  Serious: Yes (Life-Threatening, Hospitalization)
  Sender: FDA-Public Use
  Company Number: FR-PFIZER INC-2014033446

PATIENT
  Age: 66 Year
  Sex: Female

DRUGS (12)
  1. TRIATEC [Suspect]
     Indication: HYPERTENSION
     Dosage: 10 MG, DAILY
     Route: 048
  2. GLUCOPHAGE [Suspect]
     Indication: TYPE 2 DIABETES MELLITUS
     Dosage: 3 G, DAILY
     Route: 048
  3. ESIDREX [Suspect]
     Indication: HYPERTENSION
     Dosage: 0.5 DF, DAILY
     Route: 048
  4. KARDEGIC [Concomitant]
     Dosage: UNK
  5. DAONIL [Concomitant]
     Indication: TYPE 2 DIABETES MELLITUS
     Dosage: UNK
  6. BYETTA [Concomitant]
     Indication: TYPE 2 DIABETES MELLITUS
     Dosage: UNK
  7. VASTEN [Concomitant]
     Indication: DYSLIPIDAEMIA
     Dosage: UNK
  8. FUMAFER [Concomitant]
     Indication: ANAEMIA
     Dosage: UNK
  9. CLAMOXYL [Concomitant]
     Indication: TRACHEITIS
     Dosage: UNK
     Dates: start: 20140102
  10. CORTANCYL [Concomitant]
     Indication: TRACHEITIS
     Dosage: UNK
     Dates: start: 20140102
  11. TIORFAN [Concomitant]
     Indication: DIARRHOEA
     Dosage: UNK
     Dates: start: 20140105
  12. TRIMEBUTINE [Concomitant]
     Indication: DIARRHOEA
     Dosage: UNK
     Dates: start: 20140105

REACTIONS (4)
  - Lactic acidosis [Recovering/Resolving]
  - Renal failure acute [Recovering/Resolving]
  - Dehydration [Recovering/Resolving]
  - Hyperkalaemia [Recovering/Resolving]
